FAERS Safety Report 21028135 (Version 1)
Quarter: 2022Q2

REPORT INFORMATION
  Report Type: Spontaneous
  Country: IT (occurrence: IT)
  Receive Date: 20220630
  Receipt Date: 20220630
  Transmission Date: 20220720
  Serious: Yes (Other)
  Sender: FDA-Public Use
  Company Number: None

PATIENT
  Age: 38 Year
  Sex: Female

DRUGS (5)
  1. AMIKACIN SULFATE [Suspect]
     Active Substance: AMIKACIN SULFATE
     Indication: Mycobacterium abscessus infection
     Dosage: UNIT DOSE: 1 G, FREQUENCY : 1 CYCLICAL
     Route: 042
     Dates: start: 20220328, end: 20220505
  2. KALYDECO [Concomitant]
     Active Substance: IVACAFTOR
     Indication: Cystic fibrosis
     Dosage: UNIT DOSE: 1 DF, FREQUENCY : 1 DAYS
     Route: 048
  3. MEFOXIN [Concomitant]
     Active Substance: CEFOXITIN SODIUM
     Indication: Mycobacterium abscessus infection
     Dosage: UNIT DOSE: 12 G, FREQUENCY : 1 DAYS
     Route: 042
     Dates: start: 20220328
  4. CILASTATIN SODIUM\IMIPENEM [Concomitant]
     Active Substance: CILASTATIN SODIUM\IMIPENEM
     Indication: Mycobacterium abscessus infection
     Dosage: UNIT DOSE: 2 MG, FREQUENCY : 1 DAYS
     Route: 042
     Dates: start: 20220328
  5. ELEXACAFTOR\IVACAFTOR\TEZACAFTOR [Concomitant]
     Active Substance: ELEXACAFTOR\IVACAFTOR\TEZACAFTOR
     Indication: Cystic fibrosis
     Route: 048

REACTIONS (1)
  - Bronchospasm [Unknown]

NARRATIVE: CASE EVENT DATE: 20220501
